FAERS Safety Report 7555967-X (Version None)
Quarter: 2011Q2

REPORT INFORMATION
  Report Type: 
  Country: None (occurrence: None)
  Receive Date: 20110619
  Receipt Date: 20110607
  Transmission Date: 20111010
  Serious: Yes (Hospitalization, Other)
  Sender: FDA-Public Use
  Company Number: US-ELI_LILLY_AND_COMPANY-US201010003501

PATIENT
  Sex: Female

DRUGS (14)
  1. CYCLOBENZAPRINE [Concomitant]
     Dosage: 10 MG, BID
  2. PROAIR HFA [Concomitant]
  3. FORTEO [Suspect]
     Dosage: 20 UG, DAILY (1/D)
  4. SYNTHROID [Concomitant]
     Dosage: 75 UG, QD
  5. CIPROFLOXACIN HCL [Concomitant]
     Dosage: 500 MG, BID
  6. SPIRIVA [Concomitant]
  7. ACCOLATE [Concomitant]
     Dosage: 20 MG, BID
  8. PLAVIX [Concomitant]
     Dosage: 75 MG, QOD
  9. RANITIDINE [Concomitant]
     Dosage: 300 MG, EACH EVENING
  10. VITAMIN D [Concomitant]
     Dosage: 1000 IU, UNK
  11. TRAMADOL                           /00599201/ [Concomitant]
     Dosage: UNK, PRN
  12. NYSTATIN [Concomitant]
     Dosage: 30 G, PRN
  13. FORTEO [Suspect]
     Indication: OSTEOPOROSIS
     Dosage: 20 UG, DAILY (1/D)
     Dates: start: 20100917
  14. OMEPRAZOLE [Concomitant]
     Dosage: 20 MG, QD

REACTIONS (14)
  - SKIN DISCOLOURATION [None]
  - FOOT FRACTURE [None]
  - CONTUSION [None]
  - WOUND COMPLICATION [None]
  - INJECTION SITE ERYTHEMA [None]
  - DIZZINESS [None]
  - PURULENCE [None]
  - WOUND DRAINAGE [None]
  - SOFT TISSUE DISORDER [None]
  - BONE DISORDER [None]
  - OSTEOMYELITIS [None]
  - BUNION [None]
  - SKIN ULCER [None]
  - ERYTHEMA [None]
